FAERS Safety Report 24731007 (Version 2)
Quarter: 2025Q1

REPORT INFORMATION
  Report Type: Report from Study
  Country: US (occurrence: US)
  Receive Date: 20241213
  Receipt Date: 20250225
  Transmission Date: 20250409
  Serious: Yes (Hospitalization, Other)
  Sender: ACADIA PHARMACEUTICALS
  Company Number: US-ACADIA PHARMACEUTICALS INC.-ACA-2024-TRF-008032

PATIENT
  Age: 13 Year
  Sex: Female

DRUGS (3)
  1. DAYBUE [Suspect]
     Active Substance: TROFINETIDE
     Indication: Rett syndrome
     Dosage: 50 MILLILITER, BID
     Route: 048
  2. DAYBUE [Suspect]
     Active Substance: TROFINETIDE
     Dosage: UNK (20-25 MILLILITER/BID)
     Route: 048
  3. DAYBUE [Suspect]
     Active Substance: TROFINETIDE
     Route: 065
     Dates: end: 20250214

REACTIONS (9)
  - Scoliosis surgery [Recovered/Resolved]
  - Diarrhoea [Not Recovered/Not Resolved]
  - Abnormal behaviour [Recovered/Resolved]
  - Alopecia [Recovered/Resolved]
  - Intentional underdose [Recovered/Resolved]
  - Drug ineffective [Not Recovered/Not Resolved]
  - Product colour issue [Not Recovered/Not Resolved]
  - Product use complaint [Recovered/Resolved]
  - Intentional dose omission [Not Recovered/Not Resolved]

NARRATIVE: CASE EVENT DATE: 20241126
